FAERS Safety Report 7737032-1 (Version None)
Quarter: 2011Q3

REPORT INFORMATION
  Report Type: 
  Country: None (occurrence: None)
  Receive Date: 20110908
  Receipt Date: 20110826
  Transmission Date: 20111222
  Serious: Yes (Death, Hospitalization, Other)
  Sender: FDA-Public Use
  Company Number: US-ELI_LILLY_AND_COMPANY-US201102006301

PATIENT
  Sex: Female
  Weight: 43.537 kg

DRUGS (15)
  1. ASPIRIN [Concomitant]
     Dosage: 81 MG, QD
  2. MICARDIS [Concomitant]
     Dosage: 40 MG, QD
     Dates: end: 20110603
  3. CALTRATE                           /00944201/ [Concomitant]
     Dosage: 600 MG, QD
  4. LEVOTHYROXINE SODIUM [Concomitant]
     Dosage: 100 UG, QD
  5. ASPIRIN [Concomitant]
     Dosage: 81 MG, QD
  6. CITALOPRAM HYDROBROMIDE [Concomitant]
     Dosage: 20 MG, UNK
     Dates: end: 20110603
  7. LEVOXYL [Concomitant]
     Dosage: 100 MG, UNK
  8. HYDROCHLOROTHIAZIDE [Concomitant]
     Dosage: 25 MG, QD
  9. FORTEO [Suspect]
     Indication: OSTEOPOROSIS
     Dosage: 20 UG, DAILY (1/D)
     Route: 065
     Dates: start: 20101110
  10. CENTRUM SILVER [Concomitant]
     Dosage: UNK, QD
  11. AMLODIPINE [Concomitant]
     Dosage: 5 MG, QD
  12. CITALOPRAM HYDROBROMIDE [Concomitant]
     Dosage: 20 MG, QD
  13. FORTEO [Suspect]
     Dosage: 20 UG, QD
     Route: 065
     Dates: end: 20110602
  14. NORVASC [Concomitant]
     Dosage: 5 MG, UNK
  15. CALTRATE + D [Concomitant]
     Dosage: UNK, BID

REACTIONS (10)
  - PRODUCT QUALITY ISSUE [None]
  - FATIGUE [None]
  - RETCHING [None]
  - OESOPHAGEAL CANCER METASTATIC [None]
  - HICCUPS [None]
  - INJECTION SITE PAIN [None]
  - METASTASES TO LIVER [None]
  - METASTASES TO LUNG [None]
  - METASTASES TO SALIVARY GLAND [None]
  - METASTASES TO STOMACH [None]
